FAERS Safety Report 16939984 (Version 1)
Quarter: 2019Q4

REPORT INFORMATION
  Report Type: Spontaneous
  Country: BE (occurrence: BE)
  Receive Date: 20191021
  Receipt Date: 20191021
  Transmission Date: 20200122
  Serious: Yes (Death, Other)
  Sender: FDA-Public Use
  Company Number: NVSC2019BE007242

PATIENT
  Age: 72 Year
  Sex: Male

DRUGS (4)
  1. TRAMETINIB [Suspect]
     Active Substance: TRAMETINIB
     Indication: MALIGNANT MELANOMA
  2. DABRAFENIB [Suspect]
     Active Substance: DABRAFENIB
     Indication: RECTAL CANCER
     Dosage: 300 MG, QD
     Route: 065
  3. TRAMETINIB [Suspect]
     Active Substance: TRAMETINIB
     Indication: RECTAL CANCER
     Dosage: 2 MG, QD
     Route: 065
  4. DABRAFENIB [Suspect]
     Active Substance: DABRAFENIB
     Indication: MALIGNANT MELANOMA

REACTIONS (6)
  - Serous retinal detachment [Unknown]
  - Macular fibrosis [Unknown]
  - Malignant neoplasm progression [Fatal]
  - Visual acuity reduced [Unknown]
  - Metastases to central nervous system [Fatal]
  - Facial paralysis [Fatal]
